FAERS Safety Report 10914625 (Version 2)
Quarter: 2015Q2

REPORT INFORMATION
  Report Type: Spontaneous
  Country: IE (occurrence: IE)
  Receive Date: 20150313
  Receipt Date: 20150428
  Transmission Date: 20150821
  Serious: Yes (Hospitalization, Other)
  Sender: FDA-Public Use
  Company Number: IE-GLAXOSMITHKLINE-IE2015030209

PATIENT
  Age: 61 Year
  Sex: Male
  Weight: 65 kg

DRUGS (19)
  1. PREZISTA [Suspect]
     Active Substance: DARUNAVIR ETHANOLATE
     Indication: HIV INFECTION
     Dosage: 800 MG, QD
  2. NORVIR [Suspect]
     Active Substance: RITONAVIR
     Indication: HIV INFECTION
     Dosage: 100 MG, QD
  3. FUROSEMIDE. [Concomitant]
     Active Substance: FUROSEMIDE
     Indication: FLUID RETENTION
     Dosage: 40 MG, BID
  4. CALCICHEW-D3 FORTE [Concomitant]
     Active Substance: CALCIUM\CHOLECALCIFEROL
     Indication: MINERAL SUPPLEMENTATION
     Dosage: 544MG/400 UNITS
  5. VERSATIS [Concomitant]
     Active Substance: LIDOCAINE
     Indication: ANALGESIC THERAPY
     Dosage: 1 PATCH APPLIED DAILY FOR 12 HOURS
  6. SEPTRIN [Suspect]
     Active Substance: SULFAMETHOXAZOLE\TRIMETHOPRIM
     Indication: PROPHYLAXIS
     Dosage: 480 MG, QD
  7. METHADONE [Concomitant]
     Active Substance: METHADONE HYDROCHLORIDE
     Indication: DRUG WITHDRAWAL MAINTENANCE THERAPY
  8. DIAZEPAM. [Concomitant]
     Active Substance: DIAZEPAM
     Indication: ANXIOLYTIC THERAPY
     Dosage: NOCTE
  9. MOVICOL [Concomitant]
     Active Substance: POLYETHYLENE GLYCOL 3350\POTASSIUM CHLORIDE\SODIUM BICARBONATE\SODIUM CHLORIDE
     Indication: CONSTIPATION PROPHYLAXIS
     Dosage: 1 DF, BID
  10. LACRI-LUBE EYE OINTMENT [Concomitant]
     Indication: EYE LUBRICATION THERAPY
  11. LEDIPASVIR + SOFOSBUVIR [Suspect]
     Active Substance: LEDIPASVIR\SOFOSBUVIR
     Indication: HEPATITIS C
     Dosage: 400MG/90MG
     Route: 048
     Dates: start: 20141223
  12. CENTRUM [Concomitant]
     Active Substance: VITAMINS
     Indication: VITAMIN SUPPLEMENTATION
     Dosage: 1 DF, QD
  13. THIAMINE [Concomitant]
     Active Substance: THIAMINE
     Indication: VITAMIN SUPPLEMENTATION
  14. COPEGUS [Suspect]
     Active Substance: RIBAVIRIN
     Indication: HEPATITIS C
     Dosage: 400 MG, BID
     Dates: start: 20141223, end: 20150224
  15. LAXOSE [Concomitant]
     Indication: CONSTIPATION PROPHYLAXIS
     Dosage: 15 ML, TID
  16. NEORECORMON [Concomitant]
     Active Substance: ERYTHROPOIETIN
     Indication: ANAEMIA
     Dosage: 4000 IU, 2W
     Route: 058
  17. GALFER [Concomitant]
     Active Substance: IRON
     Indication: MINERAL SUPPLEMENTATION
  18. LANSOPRAZOLE. [Concomitant]
     Active Substance: LANSOPRAZOLE
     Indication: GASTRITIS
  19. KIVEXA [Suspect]
     Active Substance: ABACAVIR SULFATE\LAMIVUDINE
     Indication: HIV INFECTION
     Dosage: 600MG/300MG

REACTIONS (6)
  - Fluid retention [Not Recovered/Not Resolved]
  - Somnolence [Not Recovered/Not Resolved]
  - Asterixis [Not Recovered/Not Resolved]
  - Asthenia [Not Recovered/Not Resolved]
  - Encephalopathy [Not Recovered/Not Resolved]
  - Lower respiratory tract infection [Not Recovered/Not Resolved]

NARRATIVE: CASE EVENT DATE: 20150220
